FAERS Safety Report 8055130-2 (Version None)
Quarter: 2012Q1

REPORT INFORMATION
  Report Type: 
  Country: None (occurrence: None)
  Receive Date: 20120119
  Receipt Date: 20120109
  Transmission Date: 20120608
  Serious: Yes (Hospitalization)
  Sender: FDA-Public Use
  Company Number: FR-BRISTOL-MYERS SQUIBB COMPANY-16353377

PATIENT
  Age: 79 Year
  Sex: Male

DRUGS (12)
  1. CALCIUM CARBONATE [Suspect]
     Dosage: 500,PODWER FOR ORAL SOLN
     Route: 048
     Dates: start: 20110902, end: 20110912
  2. ATORVASTATIN CALCIUM [Concomitant]
  3. BISOPROLOL FUMARATE [Concomitant]
  4. UN-ALFA [Suspect]
     Route: 048
     Dates: start: 20110902, end: 20110912
  5. VALSARTAN  AND HYDROCHLOROTHIAZIDE [Suspect]
     Dosage: 1DF:160MG/25MG FILM COATED TAB
     Route: 048
     Dates: end: 20110912
  6. PREVISCAN [Concomitant]
  7. HYPERIUM [Concomitant]
  8. DIAMICRON [Concomitant]
  9. VICTOZA [Concomitant]
  10. GLUCOPHAGE [Suspect]
     Dosage: FILM COATED
     Route: 048
     Dates: end: 20110912
  11. PERMIXON [Concomitant]
  12. LANTUS [Concomitant]

REACTIONS (1)
  - HYPERCALCAEMIA [None]
